FAERS Safety Report 14213270 (Version 3)
Quarter: 2018Q1

REPORT INFORMATION
  Report Type: Spontaneous
  Country: US (occurrence: US)
  Receive Date: 20171122
  Receipt Date: 20180111
  Transmission Date: 20180508
  Serious: Yes (Other)
  Sender: FDA-Public Use
  Company Number: US-PFIZER INC-2017197400

PATIENT
  Age: 70 Year
  Sex: Female
  Weight: 91.17 kg

DRUGS (25)
  1. PROVENTIL HFA [Concomitant]
     Active Substance: ALBUTEROL SULFATE
     Indication: WHEEZING
     Dosage: 180 UG, AS NEEDED (INHALE 2 PUFFS IN TO LUNGS EVERY 6 (SIX) HOURS AS NEEDED)
  2. SINGULAIR [Concomitant]
     Active Substance: MONTELUKAST SODIUM
     Dosage: 10 MG, 1X/DAY (NIGHTLY)
     Route: 048
  3. PRILOSEC [Concomitant]
     Active Substance: OMEPRAZOLE MAGNESIUM
     Dosage: 20 MG, DAILY (20MG TOTAL)
     Route: 048
  4. ASTELIN [Concomitant]
     Active Substance: AZELASTINE HYDROCHLORIDE
     Dosage: 137 UG, 2X/DAY (1 SPRAY BY NASAL ROUTE 2 (TWO) TIMES A DAY. USE IN EACH NOSTRIL AS DIRECTED.)
     Route: 045
  5. CLEOCIN [Concomitant]
     Active Substance: CLINDAMYCIN PHOSPHATE
     Dosage: 600 MG, UNK (ONE HOUR PRIOR TO DENTAL PROCEDURE)
  6. MOBIC [Concomitant]
     Active Substance: MELOXICAM
     Dosage: 15 MG, DAILY (15MG TOTAL)
     Route: 048
  7. PAMELOR [Concomitant]
     Active Substance: NORTRIPTYLINE HYDROCHLORIDE
     Dosage: 30 MG, 1X/DAY (TAKE 3 CAPSULES (30MG TOTAL) BY MOUTH NIGHTLY)
     Route: 048
  8. AROMASIN [Suspect]
     Active Substance: EXEMESTANE
     Indication: BREAST CANCER
     Dosage: UNK
  9. VITAMIN D3 [Concomitant]
     Active Substance: CHOLECALCIFEROL
     Dosage: 3000 IU, 1X/DAY (QD)
     Route: 048
     Dates: start: 20111109
  10. DITROPAN [Concomitant]
     Active Substance: OXYBUTYNIN CHLORIDE
     Dosage: 5 MG, DAILY
     Route: 048
  11. LIPITOR [Concomitant]
     Active Substance: ATORVASTATIN CALCIUM
     Dosage: 20 MG, 1X/DAY (20MG TOTAL) BY MOUTH EVERY EVENING
     Route: 048
  12. ALEVE [Concomitant]
     Active Substance: NAPROXEN SODIUM
     Dosage: 1100 MG, DAILY(220 MG FIVE TIMES A DAY)
  13. NORITATE [Concomitant]
     Active Substance: METRONIDAZOLE
     Dosage: UNK UNK, 2X/DAY
     Route: 061
  14. PATANOL [Concomitant]
     Active Substance: OLOPATADINE HYDROCHLORIDE
     Dosage: 2 GTT, AS NEEDED (BID PRN)
     Dates: start: 20121024
  15. ZOLOFT [Concomitant]
     Active Substance: SERTRALINE HYDROCHLORIDE
     Dosage: 100 MG, DAILY
     Dates: start: 20091013
  16. METHOTREXATE. [Concomitant]
     Active Substance: METHOTREXATE
     Dosage: 25 MG, WEEKLY (TAKE 10 TABLETS (25MG TOTAL) BY MOUTH EVERY 7 DAYS)
     Route: 048
  17. LYRICA [Concomitant]
     Active Substance: PREGABALIN
     Dosage: 50 MG, 3X/DAY (50MG TOTAL)
     Route: 048
  18. ZOLOFT [Concomitant]
     Active Substance: SERTRALINE HYDROCHLORIDE
     Dosage: 50 MG, 1X/DAY (QD)
     Route: 048
     Dates: start: 20091013
  19. AROMASIN [Suspect]
     Active Substance: EXEMESTANE
     Dosage: 25 MG, DAILY (25MG TOTAL)
     Route: 048
     Dates: start: 20170502
  20. VENTOLIN HFA [Concomitant]
     Active Substance: ALBUTEROL SULFATE
     Indication: WHEEZING
     Dosage: 90 UG, AS NEEDED (INHALE 2 PUFFS INTO THE LUNGS EVERY 6 (SIX) HOURS)
  21. WELLCOVORIN [Concomitant]
     Active Substance: LEUCOVORIN CALCIUM
     Dosage: 5 MG, WEEKLY
     Route: 048
  22. ASPIRIN (E.C.) [Concomitant]
     Active Substance: ASPIRIN
     Dosage: 81 MG, 1X/DAY (QD)
     Route: 048
     Dates: start: 20121024
  23. LASIX [Concomitant]
     Active Substance: FUROSEMIDE
     Dosage: 40 MG, 2X/DAY (40MG TOTAL)
     Route: 048
  24. CLARITIN [Concomitant]
     Active Substance: LORATADINE
     Dosage: 10 MG, DAILY
     Route: 048
  25. ADVAIR DISKUS [Concomitant]
     Active Substance: FLUTICASONE PROPIONATE\SALMETEROL XINAFOATE
     Dosage: 1 DF, UNK [FLUTICASONE 250UG]/[ SALMETEROL 50UG]

REACTIONS (3)
  - Lower respiratory tract infection [Unknown]
  - Malaise [Recovered/Resolved]
  - Nasopharyngitis [Unknown]
